FAERS Safety Report 19143651 (Version 1)
Quarter: 2021Q2

REPORT INFORMATION
  Report Type: Spontaneous
  Country: CA (occurrence: CA)
  Receive Date: 20210415
  Receipt Date: 20210415
  Transmission Date: 20210717
  Serious: Yes (Other)
  Sender: FDA-Public Use
  Company Number: CA-B.I. PHARMACEUTICALS,INC./RIDGEFIELD-2021-BI-096903

PATIENT
  Sex: Male

DRUGS (5)
  1. MEPOLIZUMAB [Suspect]
     Active Substance: MEPOLIZUMAB
     Indication: ASTHMA
     Route: 042
  2. SPIRIVA [Suspect]
     Active Substance: TIOTROPIUM BROMIDE MONOHYDRATE
     Indication: ASTHMA
     Dosage: 1.0 DOSAGE FORMS 1 EVERY 1 DAY
     Route: 055
  3. BUDESONIDE;FORMOTEROL FUMARATE [Suspect]
     Active Substance: BUDESONIDE\FORMOTEROL FUMARATE
     Indication: ASTHMA
     Route: 055
  4. VENTOLIN [Suspect]
     Active Substance: ALBUTEROL SULFATE
     Indication: ASTHMA
     Route: 055
  5. ALVESCO [Suspect]
     Active Substance: CICLESONIDE
     Indication: ASTHMA
     Dosage: 1.0 DOSAGE FORMS 1 EVERY 1 DAY, AEROSOL, METERED DOSE
     Route: 055

REACTIONS (2)
  - Therapeutic product effect incomplete [Unknown]
  - Asthma [Unknown]
